FAERS Safety Report 23570317 (Version 2)
Quarter: 2024Q1

REPORT INFORMATION
  Report Type: Report from Study
  Country: US (occurrence: None)
  Receive Date: 20240227
  Receipt Date: 20240326
  Transmission Date: 20240409
  Serious: Yes (Hospitalization, Other)
  Sender: FDA-Public Use
  Company Number: 2024A043400

PATIENT
  Sex: Male

DRUGS (1)
  1. LYNPARZA [Suspect]
     Active Substance: OLAPARIB
     Indication: Prostate cancer
     Route: 048

REACTIONS (7)
  - Seizure [Unknown]
  - Full blood count decreased [Unknown]
  - Fall [Unknown]
  - Magnetic resonance imaging head abnormal [Unknown]
  - Loss of consciousness [Unknown]
  - SARS-CoV-2 test positive [Unknown]
  - Drug ineffective [Unknown]
